FAERS Safety Report 4635026-6 (Version None)
Quarter: 2005Q2

REPORT INFORMATION
  Report Type: 
  Country: None (occurrence: None)
  Receive Date: 20050414
  Receipt Date: 20050401
  Transmission Date: 20051028
  Serious: Yes (Other)
  Sender: FDA-Public Use
  Company Number: FR-JNJFOC-20041206741

PATIENT
  Age: 59 Year
  Sex: Male

DRUGS (4)
  1. REMICADE [Suspect]
     Indication: CROHN'S DISEASE
     Route: 042
  2. AZATHIOPRINE [Concomitant]
  3. PURINETHOL [Concomitant]
  4. PREDNISOLONE [Concomitant]
     Dosage: AVERAGE DOSE ABOUT 60MG ONCE DAY WITHOUT BOLUS.

REACTIONS (5)
  - ASTHENIA [None]
  - CYTOMEGALOVIRUS INFECTION [None]
  - DIARRHOEA [None]
  - NON-HODGKIN'S LYMPHOMA [None]
  - WEIGHT DECREASED [None]
